FAERS Safety Report 9362982 (Version 9)
Quarter: 2016Q1

REPORT INFORMATION
  Report Type: Report from Study
  Country: BR (occurrence: BR)
  Receive Date: 20130624
  Receipt Date: 20160225
  Transmission Date: 20160526
  Serious: Yes (Hospitalization, Other)
  Sender: FDA-Public Use
  Company Number: BR-ROCHE-669818

PATIENT
  Age: 58 Year
  Sex: Female
  Weight: 68 kg

DRUGS (18)
  1. ACETAMINOPHEN. [Concomitant]
     Active Substance: ACETAMINOPHEN
     Dosage: FREQUENCY: NOT REGULARLY
     Route: 065
  2. PREDNISONE. [Concomitant]
     Active Substance: PREDNISONE
     Indication: ARTHRITIS
     Dosage: IN THE MORNING
     Route: 065
  3. OMEPRAZOLE. [Concomitant]
     Active Substance: OMEPRAZOLE
     Route: 065
  4. CALCITRIOL. [Concomitant]
     Active Substance: CALCITRIOL
     Indication: CALCIUM DEFICIENCY
     Dosage: 2 UNITS IN THE MORNING AND 1 UNIT AT NIGHT
     Route: 065
  5. ENDOFOLIN [Concomitant]
     Active Substance: FOLIC ACID
     Dosage: IN THE MORNING
     Route: 065
  6. MABTHERA [Suspect]
     Active Substance: RITUXIMAB
     Indication: RHEUMATOID ARTHRITIS
     Route: 042
     Dates: start: 20120328, end: 201211
  7. MABTHERA [Suspect]
     Active Substance: RITUXIMAB
     Dosage: ON 20/AUG/2015, RECEIVED LAST DOSE.
     Route: 042
     Dates: start: 20120405
  8. ATENOLOL. [Concomitant]
     Active Substance: ATENOLOL
     Dosage: 1/2 TABLET IN THE MORNING AND 1/2 TABLET AT NIGHT
     Route: 065
  9. MIOSAN [Concomitant]
     Active Substance: CYCLOBENZAPRINE
     Dosage: 1 TABLET BEFORE BEDTIME
     Route: 065
  10. ATENOLOL. [Concomitant]
     Active Substance: ATENOLOL
     Dosage: 1/2 TABLET IN THE MORNING AND 1/2 TABLET AT NIGHT
     Route: 065
  11. DIOVAN [Concomitant]
     Active Substance: VALSARTAN
     Indication: HYPERTENSION
     Dosage: 1/2 TABLET IN THE MORNING AS REQUIRED ONLY WHEN BP MORE THAN 150 MMHG
     Route: 065
  12. CORTISONE [Concomitant]
     Active Substance: CORTISONE\HYDROCORTISONE
  13. ACTEMRA [Suspect]
     Active Substance: TOCILIZUMAB
     Indication: RHEUMATOID ARTHRITIS
     Dosage: FORM: INFUSION, STRENGTH: 20 MG/ML
     Route: 042
     Dates: start: 20090807, end: 20120104
  14. ACTEMRA [Suspect]
     Active Substance: TOCILIZUMAB
     Route: 042
  15. METHOTREXATE [Concomitant]
     Active Substance: METHOTREXATE
     Indication: ARTHRITIS
     Dosage: 3 TABLETS ON MONDAY AND 3 TABLETS ON TUESDAY
     Route: 065
  16. SYNTHROID [Concomitant]
     Active Substance: LEVOTHYROXINE SODIUM
     Route: 065
  17. OMEGA 3 [Concomitant]
     Active Substance: OMEGA-3 FATTY ACIDS
     Route: 065
  18. METICORTEN [Concomitant]
     Active Substance: PREDNISONE
     Route: 065

REACTIONS (34)
  - Ulcer haemorrhage [Recovered/Resolved]
  - Arthropathy [Not Recovered/Not Resolved]
  - Pain in extremity [Not Recovered/Not Resolved]
  - Joint dislocation [Recovering/Resolving]
  - Suspected transmission of an infectious agent via product [Unknown]
  - Malaise [Not Recovered/Not Resolved]
  - Arthralgia [Recovering/Resolving]
  - Fall [Unknown]
  - Rheumatoid arthritis [Unknown]
  - Tremor [Recovered/Resolved]
  - Arthralgia [Not Recovered/Not Resolved]
  - Pain [Recovered/Resolved]
  - Rheumatoid arthritis [Recovered/Resolved]
  - Immunodeficiency [Unknown]
  - Anaemia [Recovering/Resolving]
  - Blood cholesterol increased [Not Recovered/Not Resolved]
  - Foot deformity [Recovered/Resolved]
  - Arthritis [Not Recovered/Not Resolved]
  - Tendonitis [Recovered/Resolved]
  - Gait disturbance [Recovered/Resolved]
  - Swelling [Recovered/Resolved]
  - Muscle twitching [Recovered/Resolved]
  - Malaise [Recovered/Resolved]
  - Neck pain [Recovered/Resolved]
  - Blood pressure decreased [Unknown]
  - Hypoaesthesia [Recovered/Resolved]
  - Headache [Recovered/Resolved]
  - Bacterial infection [Not Recovered/Not Resolved]
  - Feeling hot [Recovered/Resolved]
  - Abasia [Recovering/Resolving]
  - Hypocalcaemia [Recovered/Resolved]
  - Fatigue [Recovered/Resolved]
  - Nausea [Recovered/Resolved]
  - Dizziness [Not Recovered/Not Resolved]

NARRATIVE: CASE EVENT DATE: 200911
